FAERS Safety Report 6048729-6 (Version None)
Quarter: 2009Q1

REPORT INFORMATION
  Report Type: 
  Country: None (occurrence: None)
  Receive Date: 20090123
  Receipt Date: 20090112
  Transmission Date: 20090719
  Serious: Yes (Death, Other)
  Sender: FDA-Public Use
  Company Number: US-ROCHE-608684

PATIENT
  Age: 37 Year
  Sex: Male

DRUGS (26)
  1. CLONAZEPAM [Suspect]
     Indication: DRUG USE FOR UNKNOWN INDICATION
     Dosage: OVERDOSE; ROUTE REPORTED AS INGESTION
     Route: 048
  2. CLONAZEPAM [Suspect]
     Route: 048
  3. BUPROPION HCL [Suspect]
     Indication: DRUG USE FOR UNKNOWN INDICATION
     Dosage: OVERDOSE; ROUTE REPORTED AS INGESTION
     Route: 048
  4. BUPROPION HCL [Suspect]
     Route: 048
  5. QUETIAPINE FUMARATE [Suspect]
     Indication: DRUG USE FOR UNKNOWN INDICATION
     Dosage: OVERDOSE; ROUTE REPORTED AS INGESTION
     Route: 048
  6. QUETIAPINE FUMARATE [Suspect]
     Route: 048
  7. BACLOFEN [Suspect]
     Indication: DRUG USE FOR UNKNOWN INDICATION
     Dosage: OVERDOSE; ROUTE REPORTED AS INGESTION
     Route: 048
  8. BACLOFEN [Suspect]
     Route: 048
  9. PROMETHAZINE [Suspect]
     Indication: DRUG USE FOR UNKNOWN INDICATION
     Dosage: OVERDOSE; ROUTE REPORTED AS INGESTION
     Route: 048
  10. PROMETHAZINE [Suspect]
     Route: 048
  11. METHADONE HCL [Suspect]
     Indication: DRUG USE FOR UNKNOWN INDICATION
     Dosage: OVERDOSE; ROUTE REPORTED AS INGESTION
     Route: 048
  12. METHADONE HCL [Suspect]
     Route: 048
  13. DULOXETINE [Suspect]
     Indication: DRUG USE FOR UNKNOWN INDICATION
     Dosage: OVERDOSE; ROUTE REPORTED AS INGESTION
     Route: 048
  14. DULOXETINE [Suspect]
     Route: 048
  15. ZOLPIDEM [Suspect]
     Indication: DRUG USE FOR UNKNOWN INDICATION
     Dosage: OVERDOSE; ROUTE REPORTED AS INGESTION
     Route: 048
  16. ZOLPIDEM [Suspect]
     Route: 048
  17. LITHIUM CARBONATE [Suspect]
     Indication: DRUG USE FOR UNKNOWN INDICATION
     Dosage: OVERDOSE; ROUTE REPORTED AS INGESTION
     Route: 048
  18. LITHIUM CARBONATE [Suspect]
     Route: 048
  19. LEVOTHYROXINE [Suspect]
     Indication: DRUG USE FOR UNKNOWN INDICATION
     Dosage: OVERDOSE; ROUTE REPORTED AS INGESTION
     Route: 048
  20. LEVOTHYROXINE [Suspect]
     Route: 048
  21. LAMOTRIGINE [Suspect]
     Indication: DRUG USE FOR UNKNOWN INDICATION
     Dosage: OVERDOSE; ROUTE REPORTED AS INGESTION
     Route: 048
  22. LAMOTRIGINE [Suspect]
     Route: 048
  23. EFAVIRENZ [Suspect]
     Indication: DRUG USE FOR UNKNOWN INDICATION
     Dosage: OVERDOSE; ROUTE REPORTED AS INGESTION
     Route: 048
  24. EFAVIRENZ [Suspect]
     Route: 048
  25. EMTRICITABINE/TENOFOVIR [Suspect]
     Indication: DRUG USE FOR UNKNOWN INDICATION
     Dosage: OVERDOSE; ROUTE REPORTED AS INGESTION
     Route: 048
  26. EMTRICITABINE/TENOFOVIR [Suspect]
     Route: 048

REACTIONS (3)
  - CARDIAC ARREST [None]
  - COMPLETED SUICIDE [None]
  - RESPIRATORY ARREST [None]
